FAERS Safety Report 4364724-7 (Version None)
Quarter: 2004Q2

REPORT INFORMATION
  Report Type: 
  Country: None (occurrence: None)
  Receive Date: 20040518
  Receipt Date: 20040123
  Transmission Date: 20050107
  Serious: No
  Sender: FDA-Public Use
  Company Number: APP200400111(0)

PATIENT
  Age: 61 Year
  Sex: Male

DRUGS (15)
  1. VANCOMYCIN HYDROCHLORIDE [Suspect]
     Indication: STAPHYLOCOCCAL SEPSIS
     Dosage: 1 GM (1 GM, 1 IN 1 D), INTRAVENOUS
     Route: 042
     Dates: start: 20031020, end: 20031021
  2. VANCOMYCIN HYDROCHLORIDE [Suspect]
     Indication: UROSEPSIS
     Dosage: 1 GM (1 GM, 1 IN 1 D), INTRAVENOUS
     Route: 042
     Dates: start: 20031020, end: 20031021
  3. VANCOMYCIN HYDROCHLORIDE [Suspect]
     Indication: STAPHYLOCOCCAL SEPSIS
     Dosage: 1 GM (1 GM, 1 IN 1 D), INTRAVENOUS
     Route: 042
     Dates: start: 20031021, end: 20031104
  4. VANCOMYCIN HYDROCHLORIDE [Suspect]
     Indication: UROSEPSIS
     Dosage: 1 GM (1 GM, 1 IN 1 D), INTRAVENOUS
     Route: 042
     Dates: start: 20031021, end: 20031104
  5. VANCOMYCIN HYDROCHLORIDE [Suspect]
  6. VANCOMYCIN HYDROCHLORIDE [Suspect]
  7. VANCOMYCIN HYDROCHLORIDE [Suspect]
  8. VANCOMYCIN HYDROCHLORIDE [Suspect]
  9. DILAUDID [Concomitant]
  10. TYLENOL [Concomitant]
  11. CHROMAGEN [Concomitant]
  12. FLUOXETINE [Concomitant]
  13. RABERAZOLE (RABEPRAZOLE) [Concomitant]
  14. PERCOCET [Concomitant]
  15. REGLAN [Concomitant]

REACTIONS (1)
  - GRANULOCYTOPENIA [None]
